FAERS Safety Report 23800867 (Version 2)
Quarter: 2024Q2

REPORT INFORMATION
  Report Type: Spontaneous
  Country: US (occurrence: None)
  Receive Date: 20240430
  Receipt Date: 20240509
  Transmission Date: 20240716
  Serious: No
  Sender: FDA-Public Use
  Company Number: 2024A071277

PATIENT
  Age: 702 Month
  Sex: Female

DRUGS (1)
  1. IMFINZI [Suspect]
     Active Substance: DURVALUMAB
     Dates: start: 202306

REACTIONS (1)
  - Rash [Unknown]

NARRATIVE: CASE EVENT DATE: 20240101
